FAERS Safety Report 5497957-7 (Version None)
Quarter: 2007Q4

REPORT INFORMATION
  Report Type: 
  Country: None (occurrence: None)
  Receive Date: 20071025
  Receipt Date: 20071015
  Transmission Date: 20080405
  Serious: Yes (Death, Hospitalization, Other)
  Sender: FDA-Public Use
  Company Number: US-PFIZER INC-2006094607

PATIENT
  Sex: Female

DRUGS (3)
  1. CELEBREX [Suspect]
     Indication: PAIN
     Dates: start: 20001116, end: 20040716
  2. BEXTRA [Suspect]
     Indication: PAIN
     Dates: start: 20001116, end: 20040716
  3. VIOXX [Suspect]
     Indication: PAIN
     Dates: start: 20000101, end: 20040716

REACTIONS (2)
  - ACUTE MYOCARDIAL INFARCTION [None]
  - CARDIOGENIC SHOCK [None]
